FAERS Safety Report 7593758-4 (Version None)
Quarter: 2011Q3

REPORT INFORMATION
  Report Type: 
  Country: None (occurrence: None)
  Receive Date: 20110706
  Receipt Date: 20110624
  Transmission Date: 20111222
  Serious: Yes (Hospitalization, Other)
  Sender: FDA-Public Use
  Company Number: PHHY2011US56647

PATIENT
  Sex: Male

DRUGS (3)
  1. GILENYA [Suspect]
     Dosage: 0.5 MG, QD
     Route: 048
     Dates: start: 20110623
  2. FLOMAX [Concomitant]
     Indication: URINARY RETENTION
     Dosage: UNK UKN, UNK
  3. GILENYA [Suspect]
     Indication: MULTIPLE SCLEROSIS RELAPSE
     Dosage: 0.5 MG, QD
     Route: 048
     Dates: start: 20110401

REACTIONS (3)
  - URINARY RETENTION [None]
  - RHABDOMYOLYSIS [None]
  - CHEST PAIN [None]
